FAERS Safety Report 21732323 (Version 1)
Quarter: 2022Q4

REPORT INFORMATION
  Report Type: Spontaneous
  Country: US (occurrence: US)
  Receive Date: 20221215
  Receipt Date: 20221215
  Transmission Date: 20230112
  Serious: No
  Sender: FDA-Public Use
  Company Number: US-NOVEN PHARMACEUTICALS, INC.-2021-NOV-US003939

PATIENT
  Sex: Male

DRUGS (3)
  1. DAYTRANA [Suspect]
     Active Substance: METHYLPHENIDATE
     Indication: Attention deficit hyperactivity disorder
     Dosage: 15 MG/9HR + 20 MG/9HR, UNK
     Route: 062
  2. DAYTRANA [Suspect]
     Active Substance: METHYLPHENIDATE
     Dosage: 20 MG/9HR + 10 MG/9HR, UNK
     Route: 062
  3. DAYTRANA [Suspect]
     Active Substance: METHYLPHENIDATE
     Dosage: 30 MG/9 HOUR, UNK
     Route: 062

REACTIONS (14)
  - Overweight [Not Recovered/Not Resolved]
  - Increased appetite [Unknown]
  - Dermal absorption impaired [Unknown]
  - Therapeutic product ineffective [Unknown]
  - Underweight [Recovered/Resolved]
  - Decreased appetite [Recovered/Resolved]
  - Application site erythema [Recovered/Resolved]
  - Adhesive tape use [Unknown]
  - Exposure via direct contact [Recovered/Resolved]
  - Product administered at inappropriate site [Unknown]
  - Wrong technique in product usage process [Recovered/Resolved]
  - Prescribed overdose [Not Recovered/Not Resolved]
  - Product adhesion issue [Not Recovered/Not Resolved]
  - Device issue [Not Recovered/Not Resolved]

NARRATIVE: CASE EVENT DATE: 20200101
